FAERS Safety Report 19631178 (Version 1)
Quarter: 2021Q3

REPORT INFORMATION
  Report Type: Other
  Country: US (occurrence: US)
  Receive Date: 20210729
  Receipt Date: 20210729
  Transmission Date: 20211014
  Serious: Yes (Other)
  Sender: FDA-Public Use
  Company Number: US-APOTEX-2021AP026514

PATIENT
  Age: 82 Year
  Sex: Male

DRUGS (1)
  1. RANITIDINE TABLETS [Suspect]
     Active Substance: RANITIDINE HYDROCHLORIDE
     Indication: DYSPEPSIA
     Dosage: OTHER (TWO TIMES DAILY)
     Route: 065
     Dates: start: 199701, end: 202002

REACTIONS (6)
  - Hepatic cancer [Unknown]
  - Bone disorder [Unknown]
  - Lung neoplasm malignant [Unknown]
  - Gallbladder cancer [Unknown]
  - Colorectal cancer [Unknown]
  - Lymphadenopathy [Unknown]

NARRATIVE: CASE EVENT DATE: 20190901
